FAERS Safety Report 5496987-9 (Version None)
Quarter: 2007Q4

REPORT INFORMATION
  Report Type: 
  Country: None (occurrence: None)
  Receive Date: 20071017
  Receipt Date: 20070630
  Transmission Date: 20080405
  Serious: Yes (Other)
  Sender: FDA-Public Use
  Company Number: 2007054354

PATIENT
  Age: 24 Year
  Sex: Female
  Weight: 47 kg

DRUGS (2)
  1. DEPO-SUBQ PROVERA 104 [Suspect]
     Indication: CONTRACEPTION
     Dosage: 1-4 MG (104 MG, FIRST INJECTION), SUBCUTANEOUS
     Route: 058
     Dates: start: 20070227, end: 20070227
  2. DRUG, UNSPECIFIED (DRUG UNSPECIFIED) [Concomitant]

REACTIONS (2)
  - INJECTION SITE REACTION [None]
  - TRICHOMONIASIS [None]
